FAERS Safety Report 5712984-X (Version None)
Quarter: 2008Q2

REPORT INFORMATION
  Report Type: 
  Country: None (occurrence: None)
  Receive Date: 20080422
  Receipt Date: 20080414
  Transmission Date: 20081010
  Serious: Yes (Hospitalization)
  Sender: FDA-Public Use
  Company Number: SE-AVENTIS-200812414GDDC

PATIENT
  Age: 85 Year
  Sex: Female

DRUGS (3)
  1. DAONIL [Suspect]
     Indication: DIABETES MELLITUS
     Route: 048
     Dates: end: 20071227
  2. GLUCOPHAGE [Suspect]
     Indication: DIABETES MELLITUS
     Dates: end: 20071227
  3. ENALAPRIL MALEATE [Suspect]
     Indication: ESSENTIAL HYPERTENSION
     Route: 048
     Dates: end: 20071227

REACTIONS (1)
  - RENAL FAILURE [None]
